FAERS Safety Report 9288491 (Version 1)
Quarter: 2013Q2

REPORT INFORMATION
  Report Type: Spontaneous
  Country: NL (occurrence: NL)
  Receive Date: 20130514
  Receipt Date: 20130514
  Transmission Date: 20140414
  Serious: Yes (Other)
  Sender: FDA-Public Use
  Company Number: PHHY2013NL047135

PATIENT
  Age: 72 Year
  Sex: Female

DRUGS (2)
  1. PRAVASTATIN [Suspect]
  2. WARFARIN [Concomitant]

REACTIONS (6)
  - Fat embolism [Recovered/Resolved]
  - Blue toe syndrome [Recovered/Resolved]
  - Skin lesion [Recovered/Resolved]
  - Eosinophilia [Recovered/Resolved]
  - C-reactive protein increased [Recovered/Resolved]
  - Withdrawal syndrome [Unknown]
